FAERS Safety Report 7585415-5 (Version None)
Quarter: 2011Q2

REPORT INFORMATION
  Report Type: 
  Country: None (occurrence: None)
  Receive Date: 20110624
  Receipt Date: 20110613
  Transmission Date: 20111010
  Serious: Yes (Hospitalization)
  Sender: FDA-Public Use
  Company Number: KV200801448

PATIENT
  Age: 52 Year
  Sex: Male

DRUGS (2)
  1. MORPHINE SULFATE [Suspect]
     Indication: PAIN
     Dosage: 30 MG, 2 BID, ORAL
     Route: 048
     Dates: start: 20070101
  2. MORPHINE SULDATE [Suspect]
     Indication: PAIN
     Dosage: ORAL
     Route: 048
     Dates: start: 20070101

REACTIONS (14)
  - ABDOMINAL INFECTION [None]
  - CHEST PAIN [None]
  - NAUSEA [None]
  - LOSS OF CONSCIOUSNESS [None]
  - MALAISE [None]
  - CONSTIPATION [None]
  - DECREASED APPETITE [None]
  - WEIGHT DECREASED [None]
  - NO THERAPEUTIC RESPONSE [None]
  - PRODUCT QUALITY ISSUE [None]
  - VOMITING [None]
  - ABDOMINAL HERNIA OBSTRUCTIVE [None]
  - RETCHING [None]
  - DYSPNOEA [None]
